FAERS Safety Report 13313918 (Version 1)
Quarter: 2017Q1

REPORT INFORMATION
  Report Type: Report from Study
  Country: IT (occurrence: IT)
  Receive Date: 20170309
  Receipt Date: 20170309
  Transmission Date: 20170428
  Serious: Yes (Death, Other)
  Sender: FDA-Public Use
  Company Number: IT-MYLANLABS-2017M1014193

PATIENT

DRUGS (7)
  1. METHOTREXATE. [Suspect]
     Active Substance: METHOTREXATE
     Indication: GERM CELL CANCER
     Dosage: 100MG/M2 IN 100ML OF NORMAL SALINE OVER 15 MIN ON DAY 1, EVERY 21 DAYS AND FOLLOWED BY
     Route: 065
  2. SODIUM CHLORIDE. [Concomitant]
     Active Substance: SODIUM CHLORIDE
     Indication: PRODUCT USED FOR UNKNOWN INDICATION
     Dosage: 100ML, 250ML AND 500ML
     Route: 065
  3. DACTINOMYCIN [Suspect]
     Active Substance: DACTINOMYCIN
     Indication: GERM CELL CANCER
     Dosage: 0.5MG ON DAYS 1 AND 2, EVERY 21DAYS
     Route: 040
  4. ONCOVIN [Suspect]
     Active Substance: VINCRISTINE SULFATE
     Indication: GERM CELL CANCER
     Dosage: 1MG/M2 ON DAY 8, EVERY 21 DAYS
     Route: 065
  5. METHOTREXATE. [Suspect]
     Active Substance: METHOTREXATE
     Dosage: 200MG/M2 IN 500 ML OF NORMAL SALINE OVER 12 HOURS ON DAY 1, EVERY 21DAYS
     Route: 065
  6. ETOPOSIDE. [Suspect]
     Active Substance: ETOPOSIDE
     Indication: GERM CELL CANCER
     Dosage: 100MG/M2 IN 250ML OF NORMAL SALINE OVER 1 HR ON DAYS 1 AND 2, EVERY 21DAYS
     Route: 065
  7. CYCLOPHOSPHAMIDE. [Suspect]
     Active Substance: CYCLOPHOSPHAMIDE
     Indication: GERM CELL CANCER
     Dosage: 600MG/M2 IN 250ML OF NORMAL SALINE OVER 30MINUTE ON DAY 8, EVERY 21DAYS
     Route: 065

REACTIONS (1)
  - Cerebral haemorrhage [Fatal]
